FAERS Safety Report 7735983-5 (Version None)
Quarter: 2011Q3

REPORT INFORMATION
  Report Type: 
  Country: None (occurrence: None)
  Receive Date: 20110817
  Receipt Date: 20110311
  Transmission Date: 20111222
  Serious: Yes (Life-Threatening, Hospitalization, Other)
  Sender: FDA-Public Use
  Company Number: 20119997

PATIENT
  Sex: Male

DRUGS (4)
  1. LIORESAL [Suspect]
     Indication: MUSCLE SPASTICITY
     Dosage: DAILY, INTRATHECAL
     Route: 037
  2. DILAUDID [Concomitant]
  3. CLONIDINE [Concomitant]
  4. BUPIVICAINE [Concomitant]

REACTIONS (12)
  - CONVULSION [None]
  - VOMITING [None]
  - HYPOTENSION [None]
  - GAIT DISTURBANCE [None]
  - INTRACRANIAL HYPOTENSION [None]
  - WEIGHT INCREASED [None]
  - HYPOAESTHESIA [None]
  - OXYGEN SATURATION DECREASED [None]
  - INTENSIVE CARE [None]
  - DRUG WITHDRAWAL SYNDROME [None]
  - FEELING ABNORMAL [None]
  - OVERDOSE [None]
